FAERS Safety Report 7042053-0 (Version None)
Quarter: 2010Q4

REPORT INFORMATION
  Report Type: 
  Country: None (occurrence: None)
  Receive Date: 20101013
  Receipt Date: 20100430
  Transmission Date: 20110411
  Serious: No
  Sender: FDA-Public Use
  Company Number: US-ASTRAZENECA-2010SE19783

PATIENT
  Age: 753 Month
  Sex: Female
  Weight: 60.8 kg

DRUGS (8)
  1. SYMBICORT [Suspect]
     Indication: ASTHMA
     Dosage: 80/4.5 MCG 2 PUFFS BID
     Route: 055
     Dates: start: 20100301
  2. SYMBICORT [Suspect]
     Dosage: 80/4.5 MCG 2 PUFFS QD
     Route: 055
  3. AMITRYPTILLINE [Concomitant]
  4. EVISTA [Concomitant]
  5. CALCIUM [Concomitant]
  6. GLUCOSAMINE [Concomitant]
  7. FIBER [Concomitant]
  8. ALBUTEROL [Concomitant]

REACTIONS (2)
  - CONDITION AGGRAVATED [None]
  - DRUG INEFFECTIVE [None]
